FAERS Safety Report 14264359 (Version 1)
Quarter: 2017Q4

REPORT INFORMATION
  Report Type: Spontaneous
  Country: US (occurrence: US)
  Receive Date: 20171208
  Receipt Date: 20171208
  Transmission Date: 20180321
  Serious: No
  Sender: FDA-Public Use
  Company Number: US-JAZZ-2017-US-011659

PATIENT
  Sex: Male

DRUGS (3)
  1. XYREM [Suspect]
     Active Substance: SODIUM OXYBATE
     Dosage: DOSE ADJUSTMENT
     Route: 048
     Dates: start: 201705, end: 201705
  2. XYREM [Suspect]
     Active Substance: SODIUM OXYBATE
     Dosage: 4.5G, BID
     Route: 048
     Dates: start: 201705
  3. XYREM [Suspect]
     Active Substance: SODIUM OXYBATE
     Indication: RESTLESS LEGS SYNDROME
     Dosage: 2.25G, BID
     Route: 048
     Dates: start: 201705, end: 201705

REACTIONS (1)
  - Pain in extremity [Not Recovered/Not Resolved]
